FAERS Safety Report 16057700 (Version 1)
Quarter: 2019Q1

REPORT INFORMATION
  Report Type: Spontaneous
  Country: NO (occurrence: NO)
  Receive Date: 20190311
  Receipt Date: 20190311
  Transmission Date: 20190418
  Serious: Yes (Hospitalization, Other)
  Sender: FDA-Public Use
  Company Number: NO-BIOVERATIV-2018BV000641

PATIENT
  Sex: Male

DRUGS (1)
  1. ALPROLIX [Suspect]
     Active Substance: EFTRENONACOG ALFA
     Indication: FACTOR IX DEFICIENCY
     Route: 042

REACTIONS (3)
  - Haemorrhage [Unknown]
  - Haematuria [Recovered/Resolved]
  - Nephrolithiasis [Unknown]
